FAERS Safety Report 21173719 (Version 1)
Quarter: 2022Q3

REPORT INFORMATION
  Report Type: Spontaneous
  Country: US (occurrence: US)
  Receive Date: 20220804
  Receipt Date: 20220804
  Transmission Date: 20221026
  Serious: No
  Sender: FDA-Public Use
  Company Number: US-PERRIGO-21US031101

PATIENT
  Age: 19 Year
  Sex: Female
  Weight: 55.782 kg

DRUGS (2)
  1. LORATADINE [Suspect]
     Active Substance: LORATADINE
     Indication: Hypersensitivity
     Dosage: 10 MG, QD PRN
     Route: 048
     Dates: start: 2020, end: 20211115
  2. MOTRIN [Concomitant]
     Active Substance: IBUPROFEN
     Indication: Back injury
     Dosage: Q6HRS
     Route: 065
     Dates: start: 20211113, end: 20211114

REACTIONS (4)
  - Somnolence [Not Recovered/Not Resolved]
  - Vision blurred [Not Recovered/Not Resolved]
  - Inappropriate schedule of product administration [Recovered/Resolved]
  - Expired product administered [Recovered/Resolved]

NARRATIVE: CASE EVENT DATE: 20201001
